FAERS Safety Report 6240492-9 (Version None)
Quarter: 2009Q2

REPORT INFORMATION
  Report Type: 
  Country: None (occurrence: None)
  Receive Date: 20090623
  Receipt Date: 20090326
  Transmission Date: 20091009
  Serious: No
  Sender: FDA-Public Use
  Company Number: US-ASTRAZENECA-2009UW07749

PATIENT
  Age: 81 Year
  Sex: Female
  Weight: 70.8 kg

DRUGS (8)
  1. PULMICORT RESUPULES [Suspect]
     Dosage: 0.5 MG/ML
     Route: 055
  2. SINGULAIR [Concomitant]
  3. LANOXIN [Concomitant]
  4. FUROSEMIDE [Concomitant]
  5. FLECAINIDE ACETATE [Concomitant]
  6. CARVEDILOL [Concomitant]
  7. PREDNISONE TAB [Concomitant]
  8. VITAMINS AND SUPPLEMENTS [Concomitant]

REACTIONS (2)
  - BLOOD PRESSURE DECREASED [None]
  - HEART RATE INCREASED [None]
